FAERS Safety Report 15298769 (Version 1)
Quarter: 2018Q3

REPORT INFORMATION
  Report Type: Spontaneous
  Country: US (occurrence: US)
  Receive Date: 20180808
  Receipt Date: 20180808
  Transmission Date: 20181010
  Serious: Yes (Hospitalization)
  Sender: FDA-Public Use
  Company Number: None

PATIENT
  Age: 63 Year
  Sex: Female
  Weight: 81 kg

DRUGS (8)
  1. JANUMET [Suspect]
     Active Substance: METFORMIN HYDROCHLORIDE\SITAGLIPTIN PHOSPHATE
     Indication: DIABETES MELLITUS MANAGEMENT
     Dosage: ?          QUANTITY:1 TABLET(S);?
     Route: 048
  2. SYNTHROID [Concomitant]
     Active Substance: LEVOTHYROXINE SODIUM
  3. BABY ASPIRIN [Concomitant]
     Active Substance: ASPIRIN
  4. LIVALO [Concomitant]
     Active Substance: PITAVASTATIN CALCIUM
  5. CHLORTHALIDONE. [Concomitant]
     Active Substance: CHLORTHALIDONE
  6. IRON [Concomitant]
     Active Substance: IRON
  7. GLIPIZIDE. [Concomitant]
     Active Substance: GLIPIZIDE
  8. LOSARTAN. [Concomitant]
     Active Substance: LOSARTAN

REACTIONS (4)
  - Pancreatic disorder [None]
  - Cystitis [None]
  - Cardiac failure congestive [None]
  - Neurogenic bladder [None]

NARRATIVE: CASE EVENT DATE: 20171101
